FAERS Safety Report 19589665 (Version 3)
Quarter: 2022Q1

REPORT INFORMATION
  Report Type: Report from Study
  Country: DE (occurrence: None)
  Receive Date: 20210721
  Receipt Date: 20220127
  Transmission Date: 20220423
  Serious: Yes (Hospitalization)
  Sender: FDA-Public Use
  Company Number: DE-ROCHE-2872705

PATIENT
  Age: 73 Year
  Sex: Female

DRUGS (5)
  1. POLATUZUMAB VEDOTIN [Suspect]
     Active Substance: POLATUZUMAB VEDOTIN
     Indication: Diffuse large B-cell lymphoma
     Dosage: 1.8 MG/KG ADMINISTERED INTRAVENOUSLY ON DAY 1 OF EACH 21 DAY CYCLE FOR UP TO 3 CYCLES. (AS PER PROTO
     Route: 042
     Dates: start: 20210629, end: 20210629
  2. RITUXIMAB [Suspect]
     Active Substance: RITUXIMAB
     Indication: Diffuse large B-cell lymphoma
     Dosage: ADMINISTERED AS PER LOCAL PRACTICE AT A DOSE OF 375 MG/M2 INTRAVENOUSLY ON DAY 1 OF EACH 21-DAY CYCL
     Route: 041
     Dates: start: 20210629, end: 20210629
  3. IFOSFAMIDE [Suspect]
     Active Substance: IFOSFAMIDE
     Indication: Diffuse large B-cell lymphoma
     Dosage: 5000 MG/M SQ. ADMINISTERED I.V. OVER A 24 HR PERIOD STARTING ON CYCLE DAY 2. (AS PER PROTOCOL).
     Route: 042
     Dates: start: 20210630, end: 20210630
  4. CARBOPLATIN [Suspect]
     Active Substance: CARBOPLATIN
     Indication: Diffuse large B-cell lymphoma
     Dosage: AUC 5 MAX 800 MG ADMINISTERED I.V. ON CYCLE DAY 2. (AS PER PROTOCOL).
     Route: 042
     Dates: start: 20210630, end: 20210630
  5. ETOPOSIDE [Suspect]
     Active Substance: ETOPOSIDE
     Indication: Diffuse large B-cell lymphoma
     Dosage: 100 MG/M SQ. ADMINISTERED I.V. ON CYCLE DAYS 1, 2 AND 3. (AS PER PROTOCOL).
     Route: 042
     Dates: start: 20210629, end: 20210701

REACTIONS (1)
  - Acute kidney injury [Recovered/Resolved]

NARRATIVE: CASE EVENT DATE: 20210705
